FAERS Safety Report 15219508 (Version 1)
Quarter: 2018Q3

REPORT INFORMATION
  Report Type: Spontaneous
  Country: PL (occurrence: PL)
  Receive Date: 20180731
  Receipt Date: 20180731
  Transmission Date: 20181010
  Serious: Yes (Other)
  Sender: FDA-Public Use
  Company Number: PL-ROCHE-2160165

PATIENT
  Age: 75 Year
  Sex: Female
  Weight: 68 kg

DRUGS (3)
  1. CAPECITABINE. [Suspect]
     Active Substance: CAPECITABINE
     Indication: COLON CANCER
     Dosage: DATE OF RECENT DOSE: 19/FEB/2018
     Route: 048
     Dates: start: 20180215
  2. ECANSYA [Concomitant]
     Route: 065
  3. ECANSYA [Concomitant]
     Route: 065

REACTIONS (7)
  - Chest pain [Recovering/Resolving]
  - Exercise tolerance decreased [Recovering/Resolving]
  - Hypokinesia [Recovering/Resolving]
  - Electrocardiogram abnormal [Recovering/Resolving]
  - Ejection fraction decreased [Recovering/Resolving]
  - Electrocardiogram T wave abnormal [Recovering/Resolving]
  - Asthenia [Recovering/Resolving]

NARRATIVE: CASE EVENT DATE: 20180219
